FAERS Safety Report 5755967-6 (Version None)
Quarter: 2008Q2

REPORT INFORMATION
  Report Type: 
  Country: None (occurrence: None)
  Receive Date: 20080528
  Receipt Date: 20080516
  Transmission Date: 20081010
  Serious: Yes (Death)
  Sender: FDA-Public Use
  Company Number: E2020-02685-SPO-JP

PATIENT
  Age: 70 Year
  Sex: Male
  Weight: 47.2 kg

DRUGS (12)
  1. ARICEPT [Suspect]
     Indication: DEMENTIA ALZHEIMER'S TYPE
     Dosage: 3 MG, 1 IN 1 D, ORAL; 5 MG, 1 IN 1 D, ORAL; 10 MG, 1 IN 1 D, ORAL
     Route: 048
     Dates: start: 20070223, end: 20070307
  2. ARICEPT [Suspect]
     Indication: DEMENTIA ALZHEIMER'S TYPE
     Dosage: 3 MG, 1 IN 1 D, ORAL; 5 MG, 1 IN 1 D, ORAL; 10 MG, 1 IN 1 D, ORAL
     Route: 048
     Dates: start: 20070308, end: 20080324
  3. ARICEPT [Suspect]
     Indication: DEMENTIA ALZHEIMER'S TYPE
     Dosage: 3 MG, 1 IN 1 D, ORAL; 5 MG, 1 IN 1 D, ORAL; 10 MG, 1 IN 1 D, ORAL
     Route: 048
     Dates: start: 20080325, end: 20080329
  4. DEPAS (ETIZOLAM) [Concomitant]
  5. ADALAT L (NIFEDIINE) [Concomitant]
  6. CETAPRIL (ALACEPRIL) [Concomitant]
  7. DIOVAN [Concomitant]
  8. OMEPRAL (OMEPRAZOLE) [Concomitant]
  9. GASTROM (ECABET MONOSODIUM) [Concomitant]
  10. NATRIX (INDAPAMIDE) [Concomitant]
  11. AMARYL [Concomitant]
  12. URSO 250 [Concomitant]

REACTIONS (13)
  - ALCOHOL USE [None]
  - ALCOHOLIC LIVER DISEASE [None]
  - ANOREXIA [None]
  - CARDIAC ARREST [None]
  - CEREBRAL HAEMORRHAGE [None]
  - DEMENTIA [None]
  - DIZZINESS [None]
  - HYPERTENSION [None]
  - MALAISE [None]
  - MALNUTRITION [None]
  - SUDDEN DEATH [None]
  - TYPE 2 DIABETES MELLITUS [None]
  - WEIGHT INCREASED [None]
